FAERS Safety Report 4646081-1 (Version None)
Quarter: 2005Q2

REPORT INFORMATION
  Report Type: 
  Country: None (occurrence: None)
  Receive Date: 20050427
  Receipt Date: 20040420
  Transmission Date: 20051028
  Serious: Yes (Other)
  Sender: FDA-Public Use
  Company Number: US-GLAXOSMITHKLINE-A0507689A

PATIENT
  Age: 11 Year
  Sex: Female

DRUGS (3)
  1. ZOFRAN [Suspect]
     Dosage: 17MG SINGLE DOSE
     Route: 042
     Dates: start: 20040420, end: 20040420
  2. BENADRYL [Concomitant]
  3. TYLENOL [Concomitant]

REACTIONS (1)
  - HEADACHE [None]
